FAERS Safety Report 11111452 (Version 1)
Quarter: 2015Q2

REPORT INFORMATION
  Report Type: Report from Study
  Country: BR (occurrence: BR)
  Receive Date: 20150513
  Receipt Date: 20150513
  Transmission Date: 20150821
  Serious: Yes (Death, Other)
  Sender: FDA-Public Use
  Company Number: PHHY2015BR056903

PATIENT
  Sex: Female
  Weight: 54 kg

DRUGS (1)
  1. EXJADE [Suspect]
     Active Substance: DEFERASIROX
     Indication: IRON OVERLOAD
     Dosage: 1 DF, QD (IN THE MORNING)
     Route: 065

REACTIONS (5)
  - Procedural haemorrhage [Unknown]
  - Splenomegaly [Unknown]
  - Platelet count decreased [Unknown]
  - Multi-organ failure [Fatal]
  - Blood pressure decreased [Fatal]
